FAERS Safety Report 16111297 (Version 1)
Quarter: 2019Q2

REPORT INFORMATION
  Report Type: Spontaneous
  Country: US (occurrence: US)
  Receive Date: 20190322
  Receipt Date: 20190322
  Transmission Date: 20190711
  Serious: Yes (Disabling)
  Sender: FDA-Public Use
  Company Number: None

PATIENT
  Age: 74 Year
  Sex: Male
  Weight: 83.25 kg

DRUGS (8)
  1. REPATHA [Suspect]
     Active Substance: EVOLOCUMAB
     Indication: BLOOD CHOLESTEROL INCREASED
     Dosage: ?          QUANTITY:2 INJECTION(S);OTHER FREQUENCY:EVERY 2 WEEKS;?
     Route: 058
     Dates: start: 20180910, end: 20190309
  2. CLOPIDOGREL [Concomitant]
     Active Substance: CLOPIDOGREL BISULFATE
  3. LIVALO [Concomitant]
     Active Substance: PITAVASTATIN CALCIUM
  4. EDARBI [Concomitant]
     Active Substance: AZILSARTAN KAMEDOXOMIL
  5. TORSEMIDE. [Concomitant]
     Active Substance: TORSEMIDE
  6. LANTUS SOLOSTAR [Concomitant]
     Active Substance: INSULIN GLARGINE
  7. POTASSIUM CL [Concomitant]
     Active Substance: POTASSIUM CHLORIDE
  8. BYSTOLIC [Concomitant]
     Active Substance: NEBIVOLOL HYDROCHLORIDE

REACTIONS (3)
  - Dysphagia [None]
  - Dyspnoea [None]
  - Blood glucose increased [None]

NARRATIVE: CASE EVENT DATE: 20190319
